FAERS Safety Report 19008122 (Version 2)
Quarter: 2021Q1

REPORT INFORMATION
  Report Type: Other
  Country: GB (occurrence: GB)
  Receive Date: 20210316
  Receipt Date: 20210319
  Transmission Date: 20210420
  Serious: Yes (Other)
  Sender: FDA-Public Use
  Company Number: GB-CELLTRION INC.-2021GB003286

PATIENT

DRUGS (1)
  1. INFLIXIMAB (UNKNOWN) [Suspect]
     Active Substance: INFLIXIMAB
     Indication: DRUG SPECIFIC ANTIBODY
     Dosage: UNK
     Route: 058
     Dates: start: 202005, end: 202010

REACTIONS (2)
  - Drug specific antibody [Unknown]
  - Off label use [Unknown]
